FAERS Safety Report 4984436-6 (Version None)
Quarter: 2006Q2

REPORT INFORMATION
  Report Type: 
  Country: None (occurrence: None)
  Receive Date: 20060427
  Receipt Date: 20060425
  Transmission Date: 20061013
  Serious: Yes (Other)
  Sender: FDA-Public Use
  Company Number: US-GLAXOSMITHKLINE-A0603247A

PATIENT
  Age: 37 Year
  Sex: Female

DRUGS (2)
  1. LAMICTAL [Suspect]
     Dosage: 200MG TWICE PER DAY
     Route: 048
  2. PHENOBARBITAL TAB [Concomitant]

REACTIONS (6)
  - CONVULSION [None]
  - FATIGUE [None]
  - HYPERSOMNIA [None]
  - PRURITUS [None]
  - SKIN DISCOLOURATION [None]
  - SOMNOLENCE [None]
